FAERS Safety Report 15238140 (Version 1)
Quarter: 2018Q3

REPORT INFORMATION
  Report Type: Report from Study
  Country: US (occurrence: US)
  Receive Date: 20180803
  Receipt Date: 20180803
  Transmission Date: 20181010
  Serious: Yes (Hospitalization)
  Sender: FDA-Public Use
  Company Number: US-MYLANLABS-2018M1057214

PATIENT
  Age: 68 Year
  Sex: Female
  Weight: 72.6 kg

DRUGS (5)
  1. FARLETUZUMAB [Suspect]
     Active Substance: FARLETUZUMAB
     Indication: OVARIAN CANCER
     Dosage: 10 MG/KG/PLACEBO, QW
     Route: 042
     Dates: start: 20180419, end: 20180424
  2. BACTRIM [Concomitant]
     Active Substance: SULFAMETHOXAZOLE\TRIMETHOPRIM
     Indication: PRODUCT USED FOR UNKNOWN INDICATION
     Dosage: UNK
  3. DOXORUBICIN [Suspect]
     Active Substance: DOXORUBICIN
     Indication: OVARIAN CANCER
     Dosage: 30 MG/M2, CYCLE, EVERY 4 WEEKS
     Route: 042
     Dates: start: 20180419, end: 20180620
  4. FARLETUZUMAB [Suspect]
     Active Substance: FARLETUZUMAB
     Dosage: 5 MG/KG/PLACEBO, QW
     Route: 042
     Dates: start: 20180501
  5. CARBOPLATIN. [Suspect]
     Active Substance: CARBOPLATIN
     Indication: OVARIAN CANCER
     Dosage: AUC?5, CYCLE
     Route: 042
     Dates: start: 20180419, end: 20180620

REACTIONS (2)
  - Small intestinal obstruction [Recovered/Resolved]
  - Thrombocytopenia [Not Recovered/Not Resolved]

NARRATIVE: CASE EVENT DATE: 20180427
